FAERS Safety Report 8536504-X (Version None)
Quarter: 2012Q3

REPORT INFORMATION
  Report Type: 
  Country: None (occurrence: None)
  Receive Date: 20120725
  Receipt Date: 20120723
  Transmission Date: 20120928
  Serious: Yes (Death)
  Sender: FDA-Public Use
  Company Number: PHHY2012CA060731

PATIENT
  Sex: Female

DRUGS (3)
  1. FLUANXOL [Concomitant]
     Dosage: 20 MG, QMO
     Route: 030
  2. CLOZARIL [Suspect]
     Dosage: UNK UKN, UNK
     Dates: start: 20031231
  3. LITHIUM CARBONATE [Concomitant]
     Dosage: 450 MG, QHS

REACTIONS (2)
  - LUNG NEOPLASM MALIGNANT [None]
  - METASTASES TO BONE [None]
